FAERS Safety Report 25953822 (Version 1)
Quarter: 2025Q4

REPORT INFORMATION
  Report Type: Spontaneous
  Country: RU (occurrence: RU)
  Receive Date: 20251023
  Receipt Date: 20251023
  Transmission Date: 20260117
  Serious: Yes (Other)
  Sender: ROCHE
  Company Number: RU-ROCHE-10000411320

PATIENT
  Age: 75 Year
  Sex: Female

DRUGS (5)
  1. ADO-TRASTUZUMAB EMTANSINE [Suspect]
     Active Substance: ADO-TRASTUZUMAB EMTANSINE
     Indication: Breast cancer
     Dosage: 3.6 MG/KG ON DAY 1
     Route: 065
     Dates: start: 202412
  2. ADO-TRASTUZUMAB EMTANSINE [Suspect]
     Active Substance: ADO-TRASTUZUMAB EMTANSINE
     Dosage: 3 MG/KG ON DAY 1
     Route: 065
  3. TRASTUZUMAB [Suspect]
     Active Substance: TRASTUZUMAB
     Indication: Breast cancer
     Dosage: 6 MG/KG (LOADING DOSE: 8 MG/KG) ON DAY 1
     Route: 065
     Dates: start: 202304, end: 202308
  4. TRASTUZUMAB [Suspect]
     Active Substance: TRASTUZUMAB
     Dosage: 6 MG/KG (LOADING DOSE: 8 MG/KG) ON DAY 1
     Route: 065
     Dates: end: 202407
  5. DOCETAXEL [Suspect]
     Active Substance: DOCETAXEL
     Indication: Breast cancer
     Dosage: 75-100 MG/M2 ON DAY 1
     Route: 065
     Dates: start: 202304, end: 202308

REACTIONS (3)
  - Breast cancer [Unknown]
  - Thrombocytopenia [Unknown]
  - Epistaxis [Recovered/Resolved]
